FAERS Safety Report 9442718 (Version 1)
Quarter: 2013Q3

REPORT INFORMATION
  Report Type: Report from Study
  Country: AU (occurrence: AU)
  Receive Date: 20130806
  Receipt Date: 20130806
  Transmission Date: 20140515
  Serious: Yes (Hospitalization, Other)
  Sender: FDA-Public Use
  Company Number: AU-ROCHE-1256616

PATIENT
  Sex: Female
  Weight: 72.6 kg

DRUGS (19)
  1. OMALIZUMAB [Suspect]
     Indication: PRODUCT USED FOR UNKNOWN INDICATION
     Route: 058
     Dates: start: 20100609
  2. OMALIZUMAB [Suspect]
     Route: 058
     Dates: start: 20120918, end: 20121016
  3. OMALIZUMAB [Suspect]
     Route: 058
     Dates: start: 20121030
  4. OMALIZUMAB [Suspect]
     Route: 058
     Dates: start: 20130107
  5. OMALIZUMAB [Suspect]
     Route: 065
     Dates: start: 20130611
  6. PREDNISONE [Suspect]
     Indication: PRODUCT USED FOR UNKNOWN INDICATION
     Route: 048
  7. PREDNISONE [Suspect]
     Route: 048
     Dates: start: 20130214, end: 20130221
  8. PREDNISONE [Suspect]
     Route: 048
     Dates: start: 20130222, end: 20130227
  9. PREDNISONE [Suspect]
     Route: 048
  10. PREDNISONE [Suspect]
     Route: 048
  11. PREDNISONE [Suspect]
     Route: 048
  12. PULMICORT [Concomitant]
     Route: 065
  13. SPIRIVA [Concomitant]
  14. SYMBICORT [Concomitant]
     Dosage: 400/12 MICROGRAM
     Route: 065
  15. AUGMENTIN DUO FORTE [Concomitant]
     Route: 065
     Dates: start: 20130111, end: 20130121
  16. AUGMENTIN DUO FORTE [Concomitant]
     Route: 065
     Dates: start: 20130212, end: 20130220
  17. AUGMENTIN DUO FORTE [Concomitant]
     Route: 065
     Dates: start: 20130311, end: 20130321
  18. ROXITHROMYCIN [Concomitant]
     Route: 065
     Dates: start: 20130111, end: 20130121
  19. ROXITHROMYCIN [Concomitant]
     Route: 065
     Dates: start: 20130212, end: 20130220

REACTIONS (8)
  - Pneumothorax [Recovering/Resolving]
  - Pneumonia [Recovered/Resolved]
  - Oedema mucosal [Recovering/Resolving]
  - Myopathy [Recovered/Resolved]
  - Pleural effusion [Unknown]
  - Pneumoconiosis [Unknown]
  - Aspiration [Unknown]
  - Weight decreased [Unknown]
